FAERS Safety Report 7029662-X (Version None)
Quarter: 2010Q4

REPORT INFORMATION
  Report Type: 
  Country: None (occurrence: None)
  Receive Date: 20101005
  Receipt Date: 20100929
  Transmission Date: 20110411
  Serious: Yes (Death, Hospitalization, Other)
  Sender: FDA-Public Use
  Company Number: US-MERCK-1001USA01360

PATIENT
  Age: 70 Year
  Sex: Male
  Weight: 82 kg

DRUGS (4)
  1. FOSAMAX [Suspect]
     Indication: OSTEOPOROSIS
     Route: 048
     Dates: start: 19990402, end: 20010201
  2. FOSAMAX [Suspect]
     Route: 048
     Dates: start: 20010201, end: 20060701
  3. PREDNISONE [Concomitant]
     Route: 065
  4. METHOTREXATE [Concomitant]
     Route: 065

REACTIONS (38)
  - ANAEMIA [None]
  - ANXIETY [None]
  - ARTHROPATHY [None]
  - ATRIOVENTRICULAR BLOCK FIRST DEGREE [None]
  - BUNDLE BRANCH BLOCK LEFT [None]
  - BUNDLE BRANCH BLOCK RIGHT [None]
  - CAROTID ARTERY INSUFFICIENCY [None]
  - CHEST PAIN [None]
  - CHRONIC OBSTRUCTIVE PULMONARY DISEASE [None]
  - COLONIC POLYP [None]
  - COUGH [None]
  - DEATH [None]
  - DECUBITUS ULCER [None]
  - DENTAL CARIES [None]
  - DEPRESSION [None]
  - DIASTOLIC DYSFUNCTION [None]
  - DYSPHAGIA [None]
  - FISTULA [None]
  - GINGIVAL SWELLING [None]
  - GRANULOMA [None]
  - IMPAIRED HEALING [None]
  - JAW DISORDER [None]
  - JOINT SWELLING [None]
  - LOOSE TOOTH [None]
  - LYMPHADENOPATHY [None]
  - NODULE [None]
  - OSTEOARTHRITIS [None]
  - OSTEOMYELITIS [None]
  - OSTEONECROSIS OF JAW [None]
  - OVERDOSE [None]
  - PAIN IN JAW [None]
  - PNEUMONIA [None]
  - PURULENT DISCHARGE [None]
  - RIB FRACTURE [None]
  - SYNCOPE [None]
  - TOOTH DISORDER [None]
  - TOOTH LOSS [None]
  - TRIFASCICULAR BLOCK [None]
